FAERS Safety Report 14336903 (Version 1)
Quarter: 2017Q4

REPORT INFORMATION
  Report Type: Spontaneous
  Country: US (occurrence: US)
  Receive Date: 20171228
  Receipt Date: 20171228
  Transmission Date: 20180321
  Serious: Yes (Other)
  Sender: FDA-Public Use
  Company Number: None

PATIENT
  Sex: Female

DRUGS (1)
  1. ULTRAQUIN PLAIN HYDROQUINONE CREAM USP 4% [Suspect]
     Active Substance: HYDROQUINONE

REACTIONS (4)
  - Pain [None]
  - Product dosage form issue [None]
  - Skin irritation [None]
  - Erythema [None]

NARRATIVE: CASE EVENT DATE: 20171224
